FAERS Safety Report 6430202-4 (Version None)
Quarter: 2009Q4

REPORT INFORMATION
  Report Type: 
  Country: None (occurrence: None)
  Receive Date: 20091104
  Receipt Date: 20091104
  Transmission Date: 20100525
  Serious: Yes (Hospitalization)
  Sender: FDA-Public Use
  Company Number: None

PATIENT
  Sex: Female

DRUGS (14)
  1. GEMCITABINE [Suspect]
     Indication: PANCREATIC CARCINOMA
     Dosage: 1000MG/M2 DAY 1 IV DRIP
     Route: 041
     Dates: start: 20091002, end: 20091014
  2. CAPECITABINE [Suspect]
     Indication: PANCREATIC CARCINOMA
     Dosage: 1000MG/M2 BID DAYS 1-7/14 PO
     Route: 048
     Dates: start: 20091002, end: 20091017
  3. VICODIN [Concomitant]
  4. COMPAZINE [Concomitant]
  5. LORAZEPAM [Concomitant]
  6. ONDASETRON [Concomitant]
  7. DOCVSALE SODIUM [Concomitant]
  8. PANCRECARD [Concomitant]
  9. BENADRUL [Concomitant]
  10. MEDROL [Concomitant]
  11. SILVADENE [Concomitant]
  12. HYDROCORTISONE CREAM [Concomitant]
  13. LOMOTIL [Concomitant]
  14. IMODIUM [Concomitant]

REACTIONS (7)
  - BRADYCARDIA [None]
  - DIZZINESS [None]
  - NEUTROPHIL COUNT DECREASED [None]
  - PALMAR-PLANTAR ERYTHRODYSAESTHESIA SYNDROME [None]
  - SICK SINUS SYNDROME [None]
  - VENTRICULAR EXTRASYSTOLES [None]
  - WHITE BLOOD CELL COUNT DECREASED [None]
